FAERS Safety Report 16887239 (Version 1)
Quarter: 2019Q4

REPORT INFORMATION
  Report Type: Spontaneous
  Country: KR (occurrence: KR)
  Receive Date: 20191004
  Receipt Date: 20191004
  Transmission Date: 20200122
  Serious: Yes (Hospitalization, Other)
  Sender: FDA-Public Use
  Company Number: KR-009507513-1908KOR002298

PATIENT
  Age: 86 Year
  Sex: Male
  Weight: 69 kg

DRUGS (8)
  1. ZEPATIER [Suspect]
     Active Substance: ELBASVIR\GRAZOPREVIR
     Indication: CHRONIC HEPATITIS C
     Dosage: 1 TABLET, ONCE
     Route: 048
     Dates: start: 20190128, end: 20190421
  2. DISGREN [Concomitant]
     Indication: THALAMIC INFARCTION
     Dosage: 1 CAPSULE, UNKNOWN
     Route: 048
     Dates: start: 20181022
  3. SAW PALMETTO [Concomitant]
     Active Substance: HERBALS\SAW PALMETTO
     Indication: BENIGN PROSTATIC HYPERPLASIA
     Dosage: 1 CAPSULE, QD
     Route: 048
     Dates: start: 20171208
  4. DUPHALAC [Concomitant]
     Active Substance: LACTULOSE
     Indication: CONSTIPATION
     Dosage: 15 MILLILITER, BID
     Route: 048
     Dates: start: 20181022
  5. AGIO [Concomitant]
     Indication: CONSTIPATION
     Dosage: 6 GRAM, BID
     Route: 048
     Dates: start: 20180728
  6. NORVASC [Concomitant]
     Active Substance: AMLODIPINE BESYLATE
     Indication: HYPERTENSION
     Dosage: 1 TABLET, QD
     Route: 048
     Dates: start: 20180420
  7. HARNAL [Concomitant]
     Active Substance: TAMSULOSIN HYDROCHLORIDE
     Indication: BENIGN PROSTATIC HYPERPLASIA
     Dosage: 1 TABLET, UNKNOWN
     Route: 048
     Dates: start: 20190108
  8. HINECHOL [Concomitant]
     Indication: BENIGN PROSTATIC HYPERPLASIA
     Dosage: 2 TABLET, BID
     Route: 048
     Dates: start: 20190108

REACTIONS (1)
  - Femoral neck fracture [Recovered/Resolved]

NARRATIVE: CASE EVENT DATE: 20190613
